APPROVED DRUG PRODUCT: TINIDAZOLE
Active Ingredient: TINIDAZOLE
Strength: 250MG
Dosage Form/Route: TABLET;ORAL
Application: A203808 | Product #001 | TE Code: AB
Applicant: EDENBRIDGE PHARMACEUTICALS LLC
Approved: Aug 4, 2015 | RLD: No | RS: No | Type: RX